FAERS Safety Report 21889683 (Version 1)
Quarter: 2023Q1

REPORT INFORMATION
  Report Type: Report from Study
  Country: CA (occurrence: CA)
  Receive Date: 20230120
  Receipt Date: 20230120
  Transmission Date: 20230418
  Serious: Yes (Other)
  Sender: FDA-Public Use
  Company Number: CA-ABBVIE-4131633

PATIENT
  Age: 75 Year
  Sex: Female

DRUGS (2)
  1. HUMIRA [Suspect]
     Active Substance: ADALIMUMAB
     Indication: Crohn^s disease
     Route: 058
     Dates: start: 20200630, end: 202205
  2. HUMIRA [Suspect]
     Active Substance: ADALIMUMAB
     Route: 058
     Dates: start: 2022

REACTIONS (13)
  - Cataract [Unknown]
  - Abdominal discomfort [Unknown]
  - Arthralgia [Unknown]
  - Skin cancer [Unknown]
  - Malaise [Unknown]
  - Dry eye [Unknown]
  - Haemorrhoids [Unknown]
  - Eye swelling [Unknown]
  - Eye pain [Unknown]
  - Post procedural complication [Unknown]
  - Diarrhoea [Unknown]
  - Aphthous ulcer [Unknown]
  - Abdominal pain [Unknown]

NARRATIVE: CASE EVENT DATE: 20220201
